FAERS Safety Report 4995917-3 (Version None)
Quarter: 2006Q2

REPORT INFORMATION
  Report Type: 
  Country: None (occurrence: None)
  Receive Date: 20060508
  Receipt Date: 20050705
  Transmission Date: 20061013
  Serious: Yes (Hospitalization, Other)
  Sender: FDA-Public Use
  Company Number: US-MERCK-0507USA00597

PATIENT
  Age: 72 Year
  Sex: Female
  Weight: 69 kg

DRUGS (1)
  1. VIOXX [Suspect]
     Indication: BACK PAIN
     Route: 048
     Dates: start: 20010201, end: 20010714

REACTIONS (12)
  - CAROTID ARTERY ANEURYSM [None]
  - CEREBRAL INFARCTION [None]
  - CEREBROVASCULAR ACCIDENT [None]
  - CEREBROVASCULAR SPASM [None]
  - CONVULSION [None]
  - DEPRESSION [None]
  - DYSPHAGIA [None]
  - FALL [None]
  - HEMIPARESIS [None]
  - INFARCTION [None]
  - OSTEOPOROSIS [None]
  - SUBARACHNOID HAEMORRHAGE [None]
